FAERS Safety Report 5801698-3 (Version None)
Quarter: 2008Q3

REPORT INFORMATION
  Report Type: 
  Country: None (occurrence: None)
  Receive Date: 20080707
  Receipt Date: 20080627
  Transmission Date: 20090109
  Serious: Yes (Hospitalization)
  Sender: FDA-Public Use
  Company Number: B0526920A

PATIENT
  Age: 43 Year
  Sex: Male

DRUGS (2)
  1. KIVEXA [Suspect]
     Indication: HIV INFECTION
     Route: 048
     Dates: start: 20071109, end: 20071123
  2. KALETRA [Concomitant]
     Indication: HIV INFECTION
     Route: 065
     Dates: start: 20071109

REACTIONS (11)
  - ABDOMINAL PAIN [None]
  - ALVEOLITIS ALLERGIC [None]
  - BLOOD IMMUNOGLOBULIN E INCREASED [None]
  - CHILLS [None]
  - DRUG HYPERSENSITIVITY [None]
  - HYPOXIA [None]
  - INTERSTITIAL LUNG DISEASE [None]
  - LUNG DISORDER [None]
  - OXYGEN SATURATION DECREASED [None]
  - PYREXIA [None]
  - TACHYPNOEA [None]
